FAERS Safety Report 8621393-5 (Version None)
Quarter: 2012Q3

REPORT INFORMATION
  Report Type: 
  Country: None (occurrence: None)
  Receive Date: 20120824
  Receipt Date: 20120815
  Transmission Date: 20120928
  Serious: Yes (Hospitalization)
  Sender: FDA-Public Use
  Company Number: US-ASTRAZENECA-2010SE13372

PATIENT
  Age: 72 Year
  Sex: Female

DRUGS (7)
  1. NEXIUM [Suspect]
     Route: 048
  2. NEXIUM [Suspect]
     Route: 048
  3. CRESTOR [Suspect]
     Route: 048
  4. SEROQUEL [Suspect]
     Route: 048
  5. NEXIUM [Suspect]
     Route: 048
  6. SYMBICORT [Concomitant]
  7. CRESTOR [Suspect]
     Route: 048

REACTIONS (6)
  - MEMORY IMPAIRMENT [None]
  - INTENTIONAL DRUG MISUSE [None]
  - ACCIDENT [None]
  - BLOOD CHOLESTEROL INCREASED [None]
  - BARRETT'S OESOPHAGUS [None]
  - DRUG DOSE OMISSION [None]
